FAERS Safety Report 9350095 (Version 1)
Quarter: 2013Q2

REPORT INFORMATION
  Report Type: Spontaneous
  Country: US (occurrence: US)
  Receive Date: 20130616
  Receipt Date: 20130616
  Transmission Date: 20140414
  Serious: No
  Sender: FDA-Public Use
  Company Number: US-US-EMD SERONO, INC.-7106780

PATIENT
  Sex: Female

DRUGS (1)
  1. REBIF [Suspect]
     Indication: PRODUCT USED FOR UNKNOWN INDICATION
     Route: 058
     Dates: start: 20110715

REACTIONS (6)
  - Muscular weakness [Unknown]
  - Candida infection [Not Recovered/Not Resolved]
  - Sinusitis [Not Recovered/Not Resolved]
  - Red blood cell count increased [Not Recovered/Not Resolved]
  - Aphonia [Unknown]
  - Lymphadenopathy [Not Recovered/Not Resolved]
